FAERS Safety Report 5922325-0 (Version None)
Quarter: 2008Q4

REPORT INFORMATION
  Report Type: 
  Country: None (occurrence: None)
  Receive Date: 20081017
  Receipt Date: 20081008
  Transmission Date: 20090506
  Serious: Yes (Hospitalization)
  Sender: FDA-Public Use
  Company Number: US-ELI_LILLY_AND_COMPANY-US200810001923

PATIENT
  Sex: Female

DRUGS (10)
  1. BYETTA [Suspect]
     Indication: TYPE 2 DIABETES MELLITUS
     Dosage: 5 UG, 2/D
     Route: 058
     Dates: start: 20080401, end: 20080401
  2. METFORMIN HYDROCHLORIDE [Concomitant]
     Indication: TYPE 2 DIABETES MELLITUS
     Dosage: 500 MG, 2/D
  3. LEVOXYL [Concomitant]
     Dosage: 250 UG, DAILY (1/D)
     Route: 048
  4. CYTOMEL [Concomitant]
     Dosage: 5 UG, EACH EVENING
  5. ATENOLOL [Concomitant]
     Dosage: 25 MG, DAILY (1/D)
  6. MAXZIDE [Concomitant]
     Dosage: UNK, DAILY (1/D)
  7. ZYRTEC [Concomitant]
     Dosage: 10 MG, DAILY (1/D)
  8. NEXIUM [Concomitant]
     Dosage: 40 MG, DAILY (1/D)
     Route: 048
  9. OXYCONTIN [Concomitant]
     Indication: BACK PAIN
     Dosage: 40 MG, 2/D
     Route: 048
  10. HYDROMORPHONE HCL [Concomitant]
     Indication: BACK PAIN
     Dosage: 4 MG, EVERY 6 HRS
     Route: 048

REACTIONS (4)
  - CHOLECYSTECTOMY [None]
  - CHOLECYSTITIS INFECTIVE [None]
  - NAUSEA [None]
  - VOMITING [None]
